FAERS Safety Report 16642227 (Version 1)
Quarter: 2019Q3

REPORT INFORMATION
  Report Type: Spontaneous
  Country: US (occurrence: US)
  Receive Date: 20190729
  Receipt Date: 20190729
  Transmission Date: 20191004
  Serious: Yes (Other)
  Sender: FDA-Public Use
  Company Number: US-JNJFOC-20190737197

PATIENT
  Sex: Male

DRUGS (1)
  1. RISPERDAL [Suspect]
     Active Substance: RISPERIDONE
     Indication: PRODUCT USED FOR UNKNOWN INDICATION
     Route: 048
     Dates: start: 20001202, end: 20101006

REACTIONS (7)
  - Hypertension [Unknown]
  - Depression [Unknown]
  - Galactorrhoea [Unknown]
  - Breast enlargement [Unknown]
  - Sexual dysfunction [Unknown]
  - Diabetes mellitus [Unknown]
  - Weight increased [Unknown]
